FAERS Safety Report 11362602 (Version 1)
Quarter: 2015Q3

REPORT INFORMATION
  Report Type: Other
  Country: GB (occurrence: GB)
  Receive Date: 20150810
  Receipt Date: 20150810
  Transmission Date: 20151125
  Serious: Yes (Disabling)
  Sender: FDA-Public Use
  Company Number: GB-MYLANLABS-2015M1025592

PATIENT

DRUGS (1)
  1. CITALOPRAM [Suspect]
     Active Substance: CITALOPRAM HYDROBROMIDE
     Indication: ANXIETY
     Dosage: UNK
     Route: 048
     Dates: start: 201201

REACTIONS (9)
  - Amnesia [Unknown]
  - Tinnitus [Unknown]
  - Anger [Unknown]
  - Chest discomfort [Unknown]
  - Dyspnoea [Unknown]
  - Disturbance in attention [Unknown]
  - Confusional state [Unknown]
  - Pain [Unknown]
  - Bruxism [Unknown]
